FAERS Safety Report 5128712-5 (Version None)
Quarter: 2006Q4

REPORT INFORMATION
  Report Type: 
  Country: None (occurrence: None)
  Receive Date: 20061011
  Receipt Date: 20061004
  Transmission Date: 20070319
  Serious: Yes (Other)
  Sender: FDA-Public Use
  Company Number: TPA2006A00848

PATIENT
  Age: 55 Year
  Sex: Female
  Weight: 77.1115 kg

DRUGS (5)
  1. ROZEREM [Suspect]
     Dosage: 8 MG, PER ORAL
     Route: 048
     Dates: start: 20060414, end: 20060401
  2. ACIPHEX (RABEPRAZOLE SODIUM) (20 MILLIGRAM) [Concomitant]
  3. CALCIUM D (ERGOCALCIFEROL, CALCIUM PHOSPHATE, CALCIUM SODIUM LACTATE) [Concomitant]
  4. ESTRATEST [Concomitant]
  5. KETOPROFEN [Concomitant]

REACTIONS (3)
  - BACK PAIN [None]
  - DYSPNOEA [None]
  - HYPERSENSITIVITY [None]
